FAERS Safety Report 23783029 (Version 1)
Quarter: 2024Q2

REPORT INFORMATION
  Report Type: Spontaneous
  Country: CA (occurrence: CA)
  Receive Date: 20240425
  Receipt Date: 20240425
  Transmission Date: 20240715
  Serious: Yes (Other)
  Sender: FDA-Public Use
  Company Number: CA-002147023-NVSC2024CA086755

PATIENT
  Age: 83 Year
  Sex: Female

DRUGS (2)
  1. IMATINIB [Suspect]
     Active Substance: IMATINIB
     Indication: Gastrointestinal stromal tumour
     Dosage: UNK
     Route: 065
  2. IMATINIB [Suspect]
     Active Substance: IMATINIB
     Indication: C-kit gene mutation

REACTIONS (4)
  - Lichenoid keratosis [Recovered/Resolved]
  - Skin reaction [Recovered/Resolved]
  - Rash maculo-papular [Recovered/Resolved]
  - Drug intolerance [Unknown]
